FAERS Safety Report 4450848-2 (Version None)
Quarter: 2004Q3

REPORT INFORMATION
  Report Type: 
  Country: None (occurrence: None)
  Receive Date: 20040913
  Receipt Date: 20040520
  Transmission Date: 20050211
  Serious: No
  Sender: FDA-Public Use
  Company Number: 2004-BP-03989BP(0)

PATIENT
  Age: 70 Year
  Sex: Female

DRUGS (3)
  1. SPIRIVA [Suspect]
     Indication: CHRONIC OBSTRUCTIVE AIRWAYS DISEASE
     Dosage: 18 MCG (18 MCG), IH
     Dates: start: 20040509, end: 20040519
  2. ALBUTEROL [Concomitant]
  3. SEREVENT [Concomitant]

REACTIONS (2)
  - DYSPNOEA [None]
  - VISION BLURRED [None]
